FAERS Safety Report 6348638-9 (Version None)
Quarter: 2009Q3

REPORT INFORMATION
  Report Type: 
  Country: None (occurrence: None)
  Receive Date: 20090908
  Receipt Date: 20090825
  Transmission Date: 20100115
  Serious: Yes (Hospitalization)
  Sender: FDA-Public Use
  Company Number: 2009SP002215

PATIENT
  Age: 58 Year
  Sex: Female

DRUGS (6)
  1. OMNARIS [Suspect]
     Indication: NASAL CONGESTION
     Dosage: 200 UG; QD; NASAL, 100 UG; QD; NASAL
     Route: 045
     Dates: start: 20080401, end: 20080501
  2. OMNARIS [Suspect]
     Indication: NASAL CONGESTION
     Dosage: 200 UG; QD; NASAL, 100 UG; QD; NASAL
     Route: 045
     Dates: start: 20090811
  3. ASTELIN [Suspect]
     Dosage: ; HS;
     Dates: start: 20080401
  4. ADVAIR HFA [Concomitant]
  5. PROAIR HFA [Concomitant]
  6. FLUCONAZOLE [Concomitant]

REACTIONS (4)
  - DYSPHONIA [None]
  - HEADACHE [None]
  - SINUSITIS [None]
  - URINARY TRACT INFECTION [None]
